FAERS Safety Report 20371954 (Version 1)
Quarter: 2022Q1

REPORT INFORMATION
  Report Type: 
  Country: IT (occurrence: IT)
  Receive Date: 20220124
  Receipt Date: 20220124
  Transmission Date: 20220423
  Serious: Yes (Death, Other)
  Sender: FDA-Public Use
  Company Number: IT-Stemline Therapeutics, Inc.-2022ST000005

PATIENT

DRUGS (4)
  1. ELZONRIS [Suspect]
     Active Substance: TAGRAXOFUSP-ERZS
     Indication: Acute myeloid leukaemia
     Dosage: 1-3 DAY/CYCLE; CYCLE 1
     Route: 042
  2. ELZONRIS [Suspect]
     Active Substance: TAGRAXOFUSP-ERZS
     Dosage: 1-3 DAY/CYCLE; CYCLE 2
     Route: 042
  3. ELZONRIS [Suspect]
     Active Substance: TAGRAXOFUSP-ERZS
     Dosage: 1-3 DAY/CYCLE; CYCLE 3
     Route: 042
  4. ELZONRIS [Suspect]
     Active Substance: TAGRAXOFUSP-ERZS
     Dosage: 1-3 DAY/CYCLE; CYCLE 4
     Route: 042

REACTIONS (3)
  - Central nervous system haemorrhage [Fatal]
  - Capillary leak syndrome [Unknown]
  - Off label use [Unknown]
